FAERS Safety Report 6357322-7 (Version None)
Quarter: 2009Q3

REPORT INFORMATION
  Report Type: 
  Country: None (occurrence: None)
  Receive Date: 20090916
  Receipt Date: 20070813
  Transmission Date: 20100115
  Serious: Yes (Other)
  Sender: FDA-Public Use
  Company Number: US-ASTRAZENECA-2007UW19603

PATIENT
  Age: 7657 Day
  Sex: Female
  Weight: 106.6 kg

DRUGS (32)
  1. SEROQUEL [Suspect]
     Indication: BIPOLAR DISORDER
     Dosage: 100 MG - 300 MG
     Route: 048
     Dates: start: 20030929
  2. SEROQUEL [Suspect]
     Indication: INSOMNIA
     Dosage: 100 MG - 300 MG
     Route: 048
     Dates: start: 20030929
  3. SEROQUEL [Suspect]
     Indication: AFFECTIVE DISORDER
     Dosage: 100 MG - 300 MG
     Route: 048
     Dates: start: 20030929
  4. ZYPREXA [Concomitant]
     Dates: start: 20011105
  5. ZYPREXA [Concomitant]
     Route: 048
     Dates: start: 20020822
  6. DEPO-PROVERA [Concomitant]
     Dates: start: 20010605
  7. OXYCODONE HCL AND ACETAMINOPHEN [Concomitant]
     Dosage: 5MG-325MG TAB, TAKE ONE TO TWO PO Q4-6H PRN
     Route: 048
     Dates: start: 20030916
  8. SULFAMETHOXAZOLE AND TRIMETHOPRIM [Concomitant]
     Dosage: 800/160, TAKE ONE , TWO TIME A DAY
     Route: 048
     Dates: start: 20030925
  9. PROPOXYPHENE-N [Concomitant]
     Indication: PAIN
     Dosage: 1-2 Q6HRS PRN
     Route: 048
     Dates: start: 20031021
  10. OXYCYCLINE [Concomitant]
     Route: 048
     Dates: start: 20031119
  11. ORTHO EVRA [Concomitant]
     Dosage: 1 PATCH WEEKLY, THEN OFF FOR 1 WEEK
     Dates: start: 20030925
  12. XANAX [Concomitant]
     Dates: start: 20011105
  13. XANAX [Concomitant]
     Route: 048
     Dates: start: 20020822
  14. XANAX [Concomitant]
     Route: 048
     Dates: start: 20021118
  15. XANAX [Concomitant]
     Dosage: 1 MG - 2 MG
     Route: 048
     Dates: start: 20020308
  16. EFFEXOR XR [Concomitant]
     Dosage: TAKE ONE QAM ADVANCE TO TWO QAM AS TOLERATED, 37.5 MG EVERY MORNING
     Route: 048
     Dates: start: 20021118
  17. EFFEXOR XR [Concomitant]
     Route: 048
     Dates: start: 20030102
  18. EFFEXOR XR [Concomitant]
     Route: 048
     Dates: start: 20030506
  19. EFFEXOR XR [Concomitant]
     Route: 048
     Dates: start: 20040303
  20. EFFEXOR XR [Concomitant]
     Route: 048
     Dates: start: 20031015
  21. AMBIEN [Concomitant]
     Indication: INSOMNIA
     Route: 048
  22. AMBIEN [Concomitant]
     Dosage: 5 MG - 10 MG
     Route: 048
     Dates: start: 20020308
  23. LAMICTAL [Concomitant]
     Indication: AFFECTIVE DISORDER
     Dates: start: 20020308
  24. TRAZODONE HCL [Concomitant]
     Route: 048
     Dates: start: 20020809, end: 20050309
  25. GEODON [Concomitant]
     Route: 048
     Dates: start: 20040303, end: 20050309
  26. NAPROSYN [Concomitant]
     Route: 048
     Dates: start: 20010320
  27. ZOLOFT [Concomitant]
     Dates: start: 20010605
  28. DEPAKOTE [Concomitant]
     Dates: start: 20010730
  29. CELEBREX [Concomitant]
     Dates: start: 20020809
  30. NEXIUM [Concomitant]
     Indication: HYPERCHLORHYDRIA
     Route: 048
     Dates: start: 20040602, end: 20050309
  31. NEXIUM [Concomitant]
     Indication: BURNING SENSATION
     Route: 048
     Dates: start: 20040602, end: 20050309
  32. TORADOL [Concomitant]
     Dates: start: 20010320

REACTIONS (54)
  - ABDOMINAL PAIN [None]
  - ABSCESS [None]
  - ACARODERMATITIS [None]
  - ADVERSE DRUG REACTION [None]
  - AMENORRHOEA [None]
  - BODY TINEA [None]
  - BRONCHITIS [None]
  - CELLULITIS [None]
  - CERVICITIS [None]
  - CONTUSION [None]
  - CONVULSION [None]
  - COSTOCHONDRITIS [None]
  - CYSTITIS [None]
  - DEHYDRATION [None]
  - DERMATITIS [None]
  - DIABETES MELLITUS [None]
  - DIABETES MELLITUS INADEQUATE CONTROL [None]
  - DIABETIC NEUROPATHY [None]
  - DIARRHOEA [None]
  - DRUG EXPOSURE DURING PREGNANCY [None]
  - DRUG HYPERSENSITIVITY [None]
  - DYSFUNCTIONAL UTERINE BLEEDING [None]
  - DYSURIA [None]
  - ECZEMA [None]
  - FALL [None]
  - GASTROENTERITIS [None]
  - GESTATIONAL DIABETES [None]
  - GLYCOSURIA [None]
  - HEADACHE [None]
  - HYPERCHOLESTEROLAEMIA [None]
  - HYPERGLYCAEMIA [None]
  - JOINT SPRAIN [None]
  - MASTITIS [None]
  - MENSTRUATION IRREGULAR [None]
  - MOOD ALTERED [None]
  - MUSCLE STRAIN [None]
  - MUSCULOSKELETAL DISORDER [None]
  - MYOSITIS [None]
  - NAUSEA [None]
  - OVERWEIGHT [None]
  - PHARYNGITIS [None]
  - POLLAKIURIA [None]
  - PRURITUS [None]
  - SINUSITIS [None]
  - TYPE 1 DIABETES MELLITUS [None]
  - TYPE 2 DIABETES MELLITUS [None]
  - TYPE IV HYPERLIPIDAEMIA [None]
  - UPPER RESPIRATORY TRACT INFECTION [None]
  - URINARY TRACT INFECTION [None]
  - VAGINAL HAEMORRHAGE [None]
  - VAGINITIS BACTERIAL [None]
  - VOMITING [None]
  - WEIGHT DECREASED [None]
  - WEIGHT INCREASED [None]
